FAERS Safety Report 4321972-X (Version None)
Quarter: 2004Q1

REPORT INFORMATION
  Report Type: 
  Country: None (occurrence: None)
  Receive Date: 20040323
  Receipt Date: 20040312
  Transmission Date: 20041129
  Serious: Yes (Hospitalization)
  Sender: FDA-Public Use
  Company Number: BE-BRISTOL-MYERS SQUIBB COMPANY-12532040

PATIENT
  Age: 71 Year
  Sex: Male

DRUGS (10)
  1. COAPROVEL TABS 300MG/12.5MG [Suspect]
     Indication: CARDIAC FAILURE
     Dosage: 300MG/12.5MG
     Route: 048
     Dates: start: 20020601, end: 20040207
  2. COAPROVEL TABS 300MG/12.5MG [Suspect]
     Indication: HYPERTENSION
     Dosage: 300MG/12.5MG
     Route: 048
     Dates: start: 20020601, end: 20040207
  3. RYTMONORM [Concomitant]
  4. KREDEX [Concomitant]
     Dosage: 2 X 1/2/DAY
  5. DIAZEPAM [Concomitant]
  6. ASAFLOW [Concomitant]
  7. BECOTIDE [Concomitant]
  8. FORADIL [Concomitant]
  9. DIPYRIDAMOLE [Concomitant]
  10. OMEPRAZOLE [Concomitant]

REACTIONS (2)
  - BLOOD CREATININE INCREASED [None]
  - URINARY BLADDER POLYP [None]
